FAERS Safety Report 6643801-1 (Version None)
Quarter: 2010Q1

REPORT INFORMATION
  Report Type: 
  Country: None (occurrence: None)
  Receive Date: 20100322
  Receipt Date: 20100308
  Transmission Date: 20100710
  Serious: Yes (Other)
  Sender: FDA-Public Use
  Company Number: US-ELI_LILLY_AND_COMPANY-US201003003673

PATIENT
  Sex: Female

DRUGS (4)
  1. EVISTA [Suspect]
     Indication: OSTEOPENIA
     Dosage: 60 MG, DAILY (1/D)
     Dates: start: 20090201, end: 20090801
  2. EVISTA [Suspect]
     Dosage: 60 MG, DAILY (1/D)
     Dates: start: 20100101
  3. CENTRUM SILVER [Concomitant]
  4. GLUCOSAMINE/CHONDROITIN /01625901/ [Concomitant]

REACTIONS (3)
  - BREAST CANCER [None]
  - INFLUENZA [None]
  - TENDON RUPTURE [None]
